FAERS Safety Report 4824109-3 (Version None)
Quarter: 2005Q4

REPORT INFORMATION
  Report Type: 
  Country: None (occurrence: None)
  Receive Date: 20051108
  Receipt Date: 20051020
  Transmission Date: 20060501
  Serious: Yes (Hospitalization, Other)
  Sender: FDA-Public Use
  Company Number: USA040465347

PATIENT
  Age: 64 Year
  Sex: Female

DRUGS (2)
  1. EVISTA [Suspect]
     Dosage: UNK
     Route: 065
     Dates: start: 20030101
  2. FORTEO [Suspect]
     Indication: OSTEOPOROSIS
     Dosage: UNK
     Route: 065
     Dates: start: 20040415

REACTIONS (11)
  - BONE GRAFT [None]
  - DIZZINESS [None]
  - DYSPHAGIA [None]
  - FALL [None]
  - GRAFT COMPLICATION [None]
  - HEAD LAG ABNORMAL [None]
  - OSTEOPOROSIS [None]
  - PHARMACEUTICAL PRODUCT COMPLAINT [None]
  - POST PROCEDURAL COMPLICATION [None]
  - SPINAL COMPRESSION FRACTURE [None]
  - VOCAL CORD PARALYSIS [None]
